FAERS Safety Report 10867194 (Version 1)
Quarter: 2015Q1

REPORT INFORMATION
  Report Type: Spontaneous
  Country: US (occurrence: US)
  Receive Date: 20150225
  Receipt Date: 20150225
  Transmission Date: 20150721
  Serious: Yes (Other)
  Sender: FDA-Public Use
  Company Number: US-SHIRE-US201501364

PATIENT
  Age: 61 Year
  Sex: Female
  Weight: 83.9 kg

DRUGS (5)
  1. ASPIRIN                            /00002701/ [Suspect]
     Active Substance: ASPIRIN
     Dosage: UNK, UNKNOWN
     Route: 065
     Dates: start: 201501
  2. ASPIRIN                            /00002701/ [Suspect]
     Active Substance: ASPIRIN
     Indication: PRODUCT USED FOR UNKNOWN INDICATION
     Dosage: UNK, UNKNOWN
     Route: 065
     Dates: end: 201412
  3. LIALDA [Suspect]
     Active Substance: MESALAMINE
     Indication: COLITIS ULCERATIVE
     Dosage: 1.2 G, 2X/DAY:BID
     Route: 048
     Dates: start: 201412
  4. LIALDA [Suspect]
     Active Substance: MESALAMINE
     Dosage: 2.4 G (1.2 G TABLETS), 2X/DAY:BID
     Route: 048
     Dates: start: 201412, end: 201412
  5. PRAVASTATIN [Concomitant]
     Active Substance: PRAVASTATIN\PRAVASTATIN SODIUM
     Indication: BLOOD CHOLESTEROL ABNORMAL
     Dosage: 40 MG, 1X/DAY:QD
     Route: 048
     Dates: start: 2010

REACTIONS (3)
  - Feeling abnormal [Recovered/Resolved]
  - Inappropriate schedule of drug administration [Not Recovered/Not Resolved]
  - Haematochezia [Recovered/Resolved]

NARRATIVE: CASE EVENT DATE: 201412
